FAERS Safety Report 5752728-9 (Version None)
Quarter: 2008Q2

REPORT INFORMATION
  Report Type: 
  Country: None (occurrence: None)
  Receive Date: 20080527
  Receipt Date: 20080527
  Transmission Date: 20081010
  Serious: Yes (Death, Hospitalization)
  Sender: FDA-Public Use
  Company Number: None

PATIENT
  Age: 62 Year
  Sex: Female

DRUGS (7)
  1. WARFARIN SODIUM [Suspect]
     Dosage: DAILY PO
     Route: 048
  2. DIOVAN [Concomitant]
  3. EXCEDRIN (MIGRAINE) [Concomitant]
  4. METHYLPREDNISOLONE [Concomitant]
  5. FOSAMAX [Concomitant]
  6. NORVASC [Concomitant]
  7. VITAMIN D [Concomitant]

REACTIONS (1)
  - CEREBRAL HAEMORRHAGE [None]
